FAERS Safety Report 7131438-X (Version None)
Quarter: 2010Q4

REPORT INFORMATION
  Report Type: 
  Country: None (occurrence: None)
  Receive Date: 20101201
  Receipt Date: 20101119
  Transmission Date: 20110411
  Serious: Yes (Hospitalization)
  Sender: FDA-Public Use
  Company Number: PHHO2010RU10172

PATIENT
  Sex: Female
  Weight: 72 kg

DRUGS (1)
  1. AMN107 AMN+CAP [Suspect]
     Indication: GASTROINTESTINAL STROMAL TUMOUR
     Dosage: 400 MG, BID
     Route: 048
     Dates: start: 20100118, end: 20100517

REACTIONS (6)
  - ABDOMINAL PAIN UPPER [None]
  - CYTOREDUCTIVE SURGERY [None]
  - FATIGUE [None]
  - GENERAL PHYSICAL HEALTH DETERIORATION [None]
  - POST PROCEDURAL FISTULA [None]
  - VOMITING [None]
